FAERS Safety Report 7518971-3 (Version None)
Quarter: 2011Q2

REPORT INFORMATION
  Report Type: 
  Country: None (occurrence: None)
  Receive Date: 20110523
  Receipt Date: 20110509
  Transmission Date: 20111010
  Serious: Yes (Hospitalization)
  Sender: FDA-Public Use
  Company Number: 2011MA005701

PATIENT
  Age: 83 Year
  Sex: Female

DRUGS (4)
  1. METFORMIN HYDROCHLORIDE [Suspect]
     Indication: DIABETES MELLITUS
     Dosage: 1000 MG;TID
  2. ASPIRIN [Concomitant]
  3. HYDROCHLOROTHIAZIDE [Concomitant]
  4. IRBESARTAN [Concomitant]

REACTIONS (14)
  - DISORIENTATION [None]
  - COLD SWEAT [None]
  - PNEUMONIA [None]
  - LACTIC ACIDOSIS [None]
  - OLIGURIA [None]
  - HEART RATE INCREASED [None]
  - RESPIRATORY RATE INCREASED [None]
  - CONFUSIONAL STATE [None]
  - ACUTE RESPIRATORY DISTRESS SYNDROME [None]
  - RENAL FAILURE ACUTE [None]
  - DEHYDRATION [None]
  - DYSPNOEA [None]
  - DIARRHOEA [None]
  - BLOOD PRESSURE DECREASED [None]
